FAERS Safety Report 4417797-7 (Version None)
Quarter: 2004Q2

REPORT INFORMATION
  Report Type: 
  Country: None (occurrence: None)
  Receive Date: 20040623
  Receipt Date: 20040319
  Transmission Date: 20050107
  Serious: Yes (Hospitalization)
  Sender: FDA-Public Use
  Company Number: 2004_000031

PATIENT
  Age: 56 Year
  Sex: Female
  Weight: 100.6985 kg

DRUGS (2)
  1. DEPOCYT [Suspect]
     Indication: MENINGITIS
     Dosage: 50 MG; X1, INTRATHECAL
     Route: 037
     Dates: start: 20040312, end: 20040312
  2. DEPOCYT [Suspect]

REACTIONS (1)
  - ARACHNOIDITIS [None]
